FAERS Safety Report 5213308-7 (Version None)
Quarter: 2007Q1

REPORT INFORMATION
  Report Type: 
  Country: None (occurrence: None)
  Receive Date: 20070119
  Receipt Date: 20051208
  Transmission Date: 20070707
  Serious: Yes (Hospitalization)
  Sender: FDA-Public Use
  Company Number: A01200508693

PATIENT
  Age: 53 Year

DRUGS (2)
  1. ARIXTRA [Suspect]
     Dosage: 2.5MG PER DAY
     Route: 058
     Dates: start: 20051108, end: 20051112
  2. DILAUDID [Concomitant]

REACTIONS (1)
  - PYREXIA [None]
